FAERS Safety Report 5002838-9 (Version None)
Quarter: 2006Q2

REPORT INFORMATION
  Report Type: 
  Country: None (occurrence: None)
  Receive Date: 20060512
  Receipt Date: 20060430
  Transmission Date: 20061013
  Serious: Yes (Other)
  Sender: FDA-Public Use
  Company Number: 2006057794

PATIENT
  Age: 55 Year
  Sex: Female
  Weight: 49.8957 kg

DRUGS (7)
  1. LYRICA [Suspect]
     Indication: FIBROMYALGIA
     Dosage: 75 MG (75 MG, 1 IN 1 D), ORAL
     Route: 048
     Dates: start: 20060101
  2. TYLENOL W/ CODEINE [Concomitant]
  3. NORCO [Concomitant]
  4. XANAX [Concomitant]
  5. EFFEXOR [Concomitant]
  6. ANTIDEPRESSANTS [Concomitant]
  7. VALSARTAN [Concomitant]

REACTIONS (2)
  - RECTAL HAEMORRHAGE [None]
  - VAGINAL HAEMORRHAGE [None]
